FAERS Safety Report 6207930-9 (Version None)
Quarter: 2009Q2

REPORT INFORMATION
  Report Type: 
  Country: None (occurrence: None)
  Receive Date: 20090529
  Receipt Date: 20080603
  Transmission Date: 20091009
  Serious: No
  Sender: FDA-Public Use
  Company Number: A0721631A

PATIENT
  Age: 49 Year
  Sex: Female

DRUGS (5)
  1. VENTOLIN [Suspect]
     Indication: ASTHMA
     Dosage: 2PUFF FOUR TIMES PER DAY
     Route: 055
     Dates: start: 20070314
  2. SPIRIVA [Concomitant]
  3. QVAR 40 [Concomitant]
  4. AVALIDE [Concomitant]
  5. NORVASC [Concomitant]

REACTIONS (2)
  - DRUG INEFFECTIVE [None]
  - PRODUCT QUALITY ISSUE [None]
